FAERS Safety Report 5892421-5 (Version None)
Quarter: 2008Q3

REPORT INFORMATION
  Report Type: 
  Country: None (occurrence: None)
  Receive Date: 20080923
  Receipt Date: 20080917
  Transmission Date: 20090109
  Serious: Yes (Hospitalization)
  Sender: FDA-Public Use
  Company Number: FR-BRISTOL-MYERS SQUIBB COMPANY-14340335

PATIENT
  Age: 68 Year
  Sex: Female

DRUGS (11)
  1. IRBESARTAN [Suspect]
     Indication: HYPERTENSION
     Dates: end: 20080802
  2. ACYCLOVIR [Suspect]
     Indication: MENINGOENCEPHALITIS HERPETIC
     Dates: start: 20080730
  3. STAGID [Concomitant]
     Dates: start: 20080725, end: 20080802
  4. NOVONORM [Concomitant]
     Dates: start: 20080725
  5. ASPIRIN [Concomitant]
     Dates: start: 20080725
  6. HYPERIUM [Concomitant]
     Dates: start: 20080725
  7. AMLOD [Concomitant]
     Dates: start: 20080725
  8. TAHOR [Concomitant]
     Dates: start: 20080725
  9. LANTUS [Concomitant]
     Dates: start: 20080725
  10. APIDRA [Concomitant]
     Dates: start: 20080725
  11. ZOLPIDEM [Concomitant]
     Dates: start: 20080725

REACTIONS (2)
  - RENAL FAILURE ACUTE [None]
  - SPEECH DISORDER [None]
